FAERS Safety Report 8996865 (Version 1)
Quarter: 2012Q4

REPORT INFORMATION
  Report Type: Spontaneous
  Country: US (occurrence: None)
  Receive Date: 20121228
  Receipt Date: 20121228
  Transmission Date: 20130627
  Serious: Yes (Other)
  Sender: FDA-Public Use
  Company Number: None

PATIENT
  Age: 71 Year
  Sex: Female
  Weight: 69.85 kg

DRUGS (1)
  1. EDARBYCLOR [Suspect]
     Indication: BLOOD PRESSURE
     Dosage: 1 pill 1 a.m oral
40 12.5
     Route: 048
     Dates: start: 20121205

REACTIONS (8)
  - Dizziness [None]
  - Blood pressure fluctuation [None]
  - Hearing impaired [None]
  - Headache [None]
  - Paraesthesia [None]
  - Burning sensation [None]
  - Chest pain [None]
  - Ear pain [None]
